FAERS Safety Report 25475071 (Version 1)
Quarter: 2025Q2

REPORT INFORMATION
  Report Type: Spontaneous
  Country: JP (occurrence: JP)
  Receive Date: 20250624
  Receipt Date: 20250624
  Transmission Date: 20250717
  Serious: Yes (Other)
  Sender: TEVA
  Company Number: JP-TEVA-VS-3325406

PATIENT
  Sex: Male

DRUGS (1)
  1. MODAFINIL [Suspect]
     Active Substance: MODAFINIL
     Indication: Narcolepsy
     Dosage: 100 MG/ DAY
     Route: 048

REACTIONS (1)
  - Erectile dysfunction [Recovered/Resolved]
